FAERS Safety Report 14835515 (Version 1)
Quarter: 2018Q2

REPORT INFORMATION
  Report Type: Spontaneous
  Country: US (occurrence: US)
  Receive Date: 20180502
  Receipt Date: 20180502
  Transmission Date: 20180711
  Serious: No
  Sender: FDA-Public Use
  Company Number: US-ASTRAZENECA-2018SE42767

PATIENT
  Sex: Female

DRUGS (1)
  1. PULMICORT FLEXHALER [Suspect]
     Active Substance: BUDESONIDE
     Dosage: 180.0UG UNKNOWN
     Route: 055
     Dates: start: 201803

REACTIONS (5)
  - Psychomotor hyperactivity [Unknown]
  - Extra dose administered [Unknown]
  - Adverse event [Unknown]
  - Device malfunction [Unknown]
  - Dysgeusia [Unknown]
